FAERS Safety Report 10440786 (Version 1)
Quarter: 2014Q3

REPORT INFORMATION
  Report Type: Spontaneous
  Country: US (occurrence: None)
  Receive Date: 20140908
  Receipt Date: 20140908
  Transmission Date: 20150326
  Serious: No
  Sender: FDA-Public Use
  Company Number: None

PATIENT
  Age: 14 Year
  Sex: Male

DRUGS (1)
  1. HUMIRA [Suspect]
     Active Substance: ADALIMUMAB
     Indication: CROHN^S DISEASE
     Dosage: 40MG  EVERY OTHER WEEK SC
     Route: 058
     Dates: start: 20140722

REACTIONS (2)
  - Swelling face [None]
  - Skin disorder [None]

NARRATIVE: CASE EVENT DATE: 20140830
